FAERS Safety Report 20613373 (Version 2)
Quarter: 2022Q2

REPORT INFORMATION
  Report Type: Report from Study
  Country: US (occurrence: US)
  Receive Date: 20220319
  Receipt Date: 20220401
  Transmission Date: 20220721
  Serious: No
  Sender: FDA-Public Use
  Company Number: US-ABBVIE-22K-163-4319657-00

PATIENT
  Sex: Female
  Weight: 121.67 kg

DRUGS (4)
  1. SYNTHROID [Suspect]
     Active Substance: LEVOTHYROXINE SODIUM
     Indication: Hypothyroidism
     Route: 048
     Dates: start: 2018
  2. SYNTHROID [Suspect]
     Active Substance: LEVOTHYROXINE SODIUM
     Indication: Hypertension
     Route: 048
     Dates: start: 2021, end: 202104
  3. SYNTHROID [Suspect]
     Active Substance: LEVOTHYROXINE SODIUM
     Indication: Diabetes mellitus
     Route: 048
     Dates: start: 202104, end: 20220316
  4. SYNTHROID [Suspect]
     Active Substance: LEVOTHYROXINE SODIUM
     Indication: Pulmonary mass
     Route: 048
     Dates: start: 20220317

REACTIONS (6)
  - Body temperature increased [Not Recovered/Not Resolved]
  - Feeling hot [Recovered/Resolved]
  - Weight increased [Not Recovered/Not Resolved]
  - Blood thyroid stimulating hormone decreased [Not Recovered/Not Resolved]
  - Blood thyroid stimulating hormone increased [Recovered/Resolved]
  - Thyroxine decreased [Not Recovered/Not Resolved]

NARRATIVE: CASE EVENT DATE: 20180101
